FAERS Safety Report 15440979 (Version 2)
Quarter: 2018Q4

REPORT INFORMATION
  Report Type: Report from Study
  Country: US (occurrence: US)
  Receive Date: 20180928
  Receipt Date: 20181029
  Transmission Date: 20190204
  Serious: Yes (Hospitalization, Other)
  Sender: FDA-Public Use
  Company Number: US-JNJFOC-20180838941

PATIENT
  Sex: Female

DRUGS (2)
  1. IMBRUVICA [Suspect]
     Active Substance: IBRUTINIB
     Indication: CHRONIC LYMPHOCYTIC LEUKAEMIA
     Route: 048
     Dates: start: 20180526
  2. IMBRUVICA [Suspect]
     Active Substance: IBRUTINIB
     Indication: CHRONIC LYMPHOCYTIC LEUKAEMIA
     Route: 048
     Dates: start: 20180912

REACTIONS (6)
  - Post procedural inflammation [Recovered/Resolved]
  - Muscle strain [Unknown]
  - Haemoglobin increased [Unknown]
  - White blood cell count decreased [Unknown]
  - Atrial flutter [Unknown]
  - Diarrhoea [Unknown]
